FAERS Safety Report 10512402 (Version 5)
Quarter: 2015Q2

REPORT INFORMATION
  Report Type: Report from Study
  Country: CA (occurrence: CA)
  Receive Date: 20141010
  Receipt Date: 20150520
  Transmission Date: 20150821
  Serious: Yes (Hospitalization, Other)
  Sender: FDA-Public Use
  Company Number: PHHY2014CA131299

PATIENT
  Age: 80 Year
  Sex: Female

DRUGS (1)
  1. SANDOSTATIN LAR DEPOT [Suspect]
     Active Substance: OCTREOTIDE ACETATE
     Indication: FEMALE GENITAL TRACT FISTULA
     Dosage: 20 MG, QMO
     Route: 030
     Dates: start: 20140806, end: 20150421

REACTIONS (11)
  - Needle issue [Unknown]
  - Nausea [Recovering/Resolving]
  - Deep vein thrombosis [Unknown]
  - Heart rate decreased [Unknown]
  - Syringe issue [Unknown]
  - Muscle atrophy [Unknown]
  - Terminal state [Unknown]
  - Peripheral swelling [Unknown]
  - Weight decreased [Unknown]
  - Cachexia [Unknown]
  - Off label use [Unknown]

NARRATIVE: CASE EVENT DATE: 2014
